FAERS Safety Report 15084458 (Version 2)
Quarter: 2018Q3

REPORT INFORMATION
  Report Type: Report from Study
  Country: US (occurrence: US)
  Receive Date: 20180628
  Receipt Date: 20180802
  Transmission Date: 20181010
  Serious: Yes (Other)
  Sender: FDA-Public Use
  Company Number: US-AMGEN-USASL2018086199

PATIENT
  Age: 50 Year
  Sex: Male

DRUGS (2)
  1. ENBREL [Suspect]
     Active Substance: ETANERCEPT
     Indication: RHEUMATOID ARTHRITIS
     Dosage: UNK (50)
     Route: 065
     Dates: end: 201708
  2. ENBREL [Suspect]
     Active Substance: ETANERCEPT
     Dosage: UNK (50)
     Route: 065
     Dates: start: 201806

REACTIONS (3)
  - Influenza [Recovered/Resolved]
  - Visual impairment [Unknown]
  - Rheumatoid arthritis [Recovering/Resolving]

NARRATIVE: CASE EVENT DATE: 201708
